FAERS Safety Report 23119369 (Version 2)
Quarter: 2024Q1

REPORT INFORMATION
  Report Type: Spontaneous
  Country: BE (occurrence: BE)
  Receive Date: 20231028
  Receipt Date: 20240125
  Transmission Date: 20240410
  Serious: Yes (Life-Threatening, Hospitalization, Other)
  Sender: FDA-Public Use
  Company Number: BE-002147023-NVSC2022BE082985

PATIENT
  Age: 69 Year
  Sex: Female

DRUGS (7)
  1. BORTEZOMIB [Suspect]
     Active Substance: BORTEZOMIB
     Indication: Plasma cell myeloma
     Dosage: 1.3 MILLIGRAM/SQ. METER, DAYS 1, 4, 8, 11,  IN A 28-DAY CYCLE REGIMEN
     Route: 065
  2. BORTEZOMIB [Suspect]
     Active Substance: BORTEZOMIB
     Dosage: INJECTION (PFT), 5.2 MG/M2, 5.2 MILLIGRAM/SQ. METER
     Route: 065
  3. DEXAMETHASONE [Suspect]
     Active Substance: DEXAMETHASONE
     Indication: Plasma cell myeloma
     Dosage: 160 MG
     Route: 058
  4. LENALIDOMIDE [Suspect]
     Active Substance: LENALIDOMIDE
     Indication: Plasma cell myeloma
     Dosage: 25 MG, QD (DAYS 1-21) 28-DAY CYCLE REGIMEN
     Route: 065
  5. LENALIDOMIDE [Suspect]
     Active Substance: LENALIDOMIDE
     Dosage: 525 MG
     Route: 065
  6. LENADEX [Suspect]
     Active Substance: DEXAMETHASONE ACETATE
     Indication: Plasma cell myeloma
     Dosage: 20 MG, CYCLIC (DAYS 1, 2, 8, 9, 15, 16, 22, 23) 28-DAY CYCLE REGIMEN
     Route: 065
  7. ENOXAPARIN SODIUM [Concomitant]
     Active Substance: ENOXAPARIN SODIUM
     Indication: Thrombosis prophylaxis
     Dosage: 40 MG, QD
     Route: 058

REACTIONS (8)
  - Hypersensitivity myocarditis [Recovered/Resolved]
  - Ventricular tachycardia [Recovered/Resolved]
  - Left ventricular hypertrophy [Recovered/Resolved]
  - Vomiting [Recovered/Resolved]
  - Hepatic enzyme increased [Recovered/Resolved]
  - Diarrhoea [Recovered/Resolved]
  - Abdominal pain [Recovered/Resolved]
  - Nausea [Recovered/Resolved]
